FAERS Safety Report 7060022-1 (Version None)
Quarter: 2010Q4

REPORT INFORMATION
  Report Type: 
  Country: None (occurrence: None)
  Receive Date: 20101025
  Receipt Date: 20101018
  Transmission Date: 20110411
  Serious: Yes (Hospitalization)
  Sender: FDA-Public Use
  Company Number: FR-WYE-H14220110

PATIENT
  Sex: Male

DRUGS (6)
  1. NERATINIB [Suspect]
     Indication: NEOPLASM
     Route: 048
     Dates: start: 20100208, end: 20100311
  2. CODEINE PHOSPHATE/PARACETAMOL [Concomitant]
     Indication: CANCER PAIN
     Dosage: NOT PROVIDED
     Route: 065
     Dates: start: 20100203
  3. VALSARTAN  AND HYDROCHLOROTHIAZIDE [Concomitant]
     Indication: HYPERTENSION
     Dosage: DOSE NOT PROVIDED
     Route: 065
     Dates: start: 20100114
  4. TIORFAN [Concomitant]
     Indication: DIARRHOEA
     Dosage: DOSE NOT PROVIDED
     Route: 065
     Dates: start: 20100127
  5. TEMSIROLIMUS [Suspect]
     Indication: NEOPLASM
     Route: 042
     Dates: start: 20100208, end: 20100311
  6. XANAX [Concomitant]
     Indication: ANXIETY
     Dosage: DOSE NOT PROVIDED
     Route: 065
     Dates: start: 20100211

REACTIONS (1)
  - PROCTALGIA [None]
